FAERS Safety Report 7173696-1 (Version None)
Quarter: 2010Q4

REPORT INFORMATION
  Report Type: 
  Country: None (occurrence: None)
  Receive Date: 20101219
  Receipt Date: 20100308
  Transmission Date: 20110411
  Serious: No
  Sender: FDA-Public Use
  Company Number: US-AMGEN-KDL398067

PATIENT

DRUGS (7)
  1. ENBREL [Suspect]
     Indication: ANKYLOSING SPONDYLITIS
     Dosage: 25 MG, 2 TIMES/WK
     Route: 058
     Dates: start: 20030101
  2. EZETIMIBE/SIMVASTATIN [Concomitant]
     Dosage: UNK UNK, UNK
  3. ASPIRIN [Concomitant]
     Dosage: 81 MG, UNK
  4. FLAX SEED OIL [Concomitant]
     Dosage: UNK UNK, UNK
  5. ERGOCALCIFEROL [Concomitant]
     Dosage: UNK UNK, UNK
  6. COENZYME Q10 [Concomitant]
     Dosage: UNK UNK, UNK
  7. FEXOFENADINE HCL [Concomitant]
     Dosage: UNK UNK, UNK

REACTIONS (5)
  - EYE SWELLING [None]
  - EYELID EXFOLIATION [None]
  - FOREIGN BODY SENSATION IN EYES [None]
  - INJECTION SITE PAIN [None]
  - LACRIMATION INCREASED [None]
